FAERS Safety Report 25256140 (Version 1)
Quarter: 2025Q2

REPORT INFORMATION
  Report Type: Spontaneous
  Country: SK (occurrence: SK)
  Receive Date: 20250430
  Receipt Date: 20250430
  Transmission Date: 20250716
  Serious: Yes (Death, Other)
  Sender: MYLAN
  Company Number: SK-ROCHE-10000262360

PATIENT
  Age: 69 Year
  Sex: Male

DRUGS (16)
  1. GEMCITABINE [Suspect]
     Active Substance: GEMCITABINE
     Indication: Transitional cell carcinoma
  2. GEMCITABINE [Suspect]
     Active Substance: GEMCITABINE
     Route: 065
  3. GEMCITABINE [Suspect]
     Active Substance: GEMCITABINE
     Route: 065
  4. GEMCITABINE [Suspect]
     Active Substance: GEMCITABINE
  5. PEMETREXED [Suspect]
     Active Substance: PEMETREXED
     Indication: Transitional cell carcinoma
  6. PEMETREXED [Suspect]
     Active Substance: PEMETREXED
     Route: 065
  7. PEMETREXED [Suspect]
     Active Substance: PEMETREXED
     Route: 065
  8. PEMETREXED [Suspect]
     Active Substance: PEMETREXED
  9. ERLOTINIB [Suspect]
     Active Substance: ERLOTINIB
     Indication: Transitional cell carcinoma
  10. ERLOTINIB [Suspect]
     Active Substance: ERLOTINIB
     Route: 048
  11. ERLOTINIB [Suspect]
     Active Substance: ERLOTINIB
     Route: 048
  12. ERLOTINIB [Suspect]
     Active Substance: ERLOTINIB
  13. BEVACIZUMAB [Suspect]
     Active Substance: BEVACIZUMAB
     Indication: Transitional cell carcinoma
  14. BEVACIZUMAB [Suspect]
     Active Substance: BEVACIZUMAB
     Route: 065
  15. BEVACIZUMAB [Suspect]
     Active Substance: BEVACIZUMAB
     Route: 065
  16. BEVACIZUMAB [Suspect]
     Active Substance: BEVACIZUMAB

REACTIONS (5)
  - Pulmonary embolism [Fatal]
  - Bronchostenosis [Unknown]
  - Thrombocytopenia [Unknown]
  - Pancytopenia [Unknown]
  - Disease progression [Unknown]

NARRATIVE: CASE EVENT DATE: 20241101
